FAERS Safety Report 22156777 (Version 2)
Quarter: 2023Q4

REPORT INFORMATION
  Report Type: Spontaneous
  Country: IN (occurrence: IN)
  Receive Date: 20230330
  Receipt Date: 20231113
  Transmission Date: 20240109
  Serious: Yes (Other)
  Sender: FDA-Public Use
  Company Number: IN-PFIZER INC-PV202300057503

PATIENT
  Age: 61 Year
  Sex: Female

DRUGS (3)
  1. AROMASIN [Suspect]
     Active Substance: EXEMESTANE
     Dosage: UNK
     Route: 048
  2. AROMASIN [Suspect]
     Active Substance: EXEMESTANE
     Dosage: 25 MG
     Route: 048
  3. QUICOBAL [Concomitant]
     Dosage: STRIP 1 DAILY

REACTIONS (4)
  - Neuropathy peripheral [Unknown]
  - Lymphoedema [Unknown]
  - Back pain [Unknown]
  - Arthropathy [Unknown]
